FAERS Safety Report 13655900 (Version 1)
Quarter: 2017Q2

REPORT INFORMATION
  Report Type: Other
  Country: AU (occurrence: AU)
  Receive Date: 20170615
  Receipt Date: 20170615
  Transmission Date: 20170830
  Serious: Yes (Hospitalization)
  Sender: FDA-Public Use
  Company Number: AU-ORCHID HEALTHCARE-2022059

PATIENT
  Age: 59 Year
  Sex: Male

DRUGS (3)
  1. PRAMIPEXOLE. [Suspect]
     Active Substance: PRAMIPEXOLE
     Route: 065
  2. MIRTAZAPINE. [Suspect]
     Active Substance: MIRTAZAPINE
     Route: 065
  3. VENLAFAXINE HYDROCHLORIDE. [Suspect]
     Active Substance: VENLAFAXINE HYDROCHLORIDE
     Route: 065

REACTIONS (12)
  - Urinary retention [Unknown]
  - Ataxia [Unknown]
  - Myoclonus [Unknown]
  - Feeling jittery [Unknown]
  - Dizziness [Unknown]
  - Hallucination, visual [Recovered/Resolved]
  - Agitation [Recovered/Resolved]
  - Heart rate increased [Unknown]
  - Dysuria [Unknown]
  - Hypervigilance [Unknown]
  - Pressure of speech [Unknown]
  - Blood lactic acid increased [Unknown]
